FAERS Safety Report 9823780 (Version 1)
Quarter: 2014Q1

REPORT INFORMATION
  Report Type: Spontaneous
  Country: US (occurrence: US)
  Receive Date: 20140116
  Receipt Date: 20140116
  Transmission Date: 20141002
  Serious: No
  Sender: FDA-Public Use
  Company Number: US-GILEAD-2011-0040049

PATIENT
  Age: 67 Year
  Sex: Male

DRUGS (1)
  1. LETAIRIS [Suspect]
     Indication: PULMONARY HYPERTENSION
     Route: 048
     Dates: start: 20100428

REACTIONS (3)
  - Pulmonary arterial hypertension [Unknown]
  - Dyspnoea [Unknown]
  - Oedema peripheral [Unknown]
